FAERS Safety Report 5135566-X (Version None)
Quarter: 2006Q4

REPORT INFORMATION
  Report Type: 
  Country: None (occurrence: None)
  Receive Date: 20061026
  Receipt Date: 19880914
  Transmission Date: 20070319
  Serious: No
  Sender: FDA-Public Use
  Company Number: US-BAYER-1198810329

PATIENT
  Age: 54 Year
  Sex: Female

DRUGS (1)
  1. NIFEDIPINE [Suspect]
     Indication: SUICIDE ATTEMPT
     Route: 048

REACTIONS (3)
  - AGGRESSION [None]
  - HYPOTENSION [None]
  - TACHYCARDIA [None]
